FAERS Safety Report 23312275 (Version 1)
Quarter: 2023Q4

REPORT INFORMATION
  Report Type: Spontaneous
  Country: JP (occurrence: JP)
  Receive Date: 20231219
  Receipt Date: 20231219
  Transmission Date: 20240110
  Serious: Yes (Other)
  Sender: FDA-Public Use
  Company Number: JP-PFIZER INC-PV202300201462

PATIENT
  Age: 61 Year
  Sex: Male

DRUGS (3)
  1. NIRMATRELVIR\RITONAVIR [Interacting]
     Active Substance: NIRMATRELVIR\RITONAVIR
     Indication: COVID-19 treatment
  2. TACROLIMUS [Interacting]
     Active Substance: TACROLIMUS
     Indication: Polymyositis
  3. PREDNISOLONE [Concomitant]
     Active Substance: PREDNISOLONE
     Indication: Polymyositis

REACTIONS (3)
  - Renal impairment [Recovering/Resolving]
  - Drug level increased [Recovering/Resolving]
  - Drug interaction [Recovering/Resolving]
